FAERS Safety Report 9350677 (Version 2)
Quarter: 2013Q3

REPORT INFORMATION
  Report Type: Spontaneous
  Country: GB (occurrence: GB)
  Receive Date: 20130617
  Receipt Date: 20130806
  Transmission Date: 20140515
  Serious: Yes (Hospitalization)
  Sender: FDA-Public Use
  Company Number: PHFR2013GB002966

PATIENT
  Age: 47 Year
  Sex: Male

DRUGS (4)
  1. CLOZARIL [Suspect]
     Indication: SCHIZOPHRENIA
     Dosage: 150 MG, BID
     Route: 048
     Dates: start: 20100708
  2. CLOZARIL [Suspect]
     Dosage: UNK UKN, UNK
     Dates: end: 201305
  3. AMLODIPINE [Concomitant]
     Dosage: 5 MG, (IN MORNING)
     Route: 048
  4. LANSOPRAZOLE [Concomitant]
     Dosage: 30 MG, PER DAY
     Route: 048

REACTIONS (6)
  - Rhabdomyolysis [Recovered/Resolved]
  - Schizophrenia [Recovered/Resolved]
  - Blood creatine phosphokinase increased [Recovered/Resolved]
  - Convulsion [Recovered/Resolved]
  - Agitation [Recovered/Resolved]
  - Iron deficiency anaemia [Unknown]
